FAERS Safety Report 5094924-2 (Version None)
Quarter: 2006Q3

REPORT INFORMATION
  Report Type: 
  Country: None (occurrence: None)
  Receive Date: 20060727
  Receipt Date: 20060621
  Transmission Date: 20061208
  Serious: No
  Sender: FDA-Public Use
  Company Number: FACT0600284

PATIENT
  Age: 32 Year
  Sex: Male
  Weight: 99.8 kg

DRUGS (2)
  1. FACTIVE [Suspect]
     Indication: RESPIRATORY TRACT INFECTION BACTERIAL
     Dosage: 320 MG, QD, ORAL
     Route: 048
     Dates: start: 20060612, end: 20060618
  2. ALLEGRA [Suspect]
     Indication: NASOPHARYNGITIS
     Dosage: BID, ORAL
     Route: 048
     Dates: start: 20060612, end: 20060614

REACTIONS (2)
  - INITIAL INSOMNIA [None]
  - RASH PAPULAR [None]
